FAERS Safety Report 21394627 (Version 1)
Quarter: 2022Q3

REPORT INFORMATION
  Report Type: Spontaneous
  Country: FR (occurrence: FR)
  Receive Date: 20220930
  Receipt Date: 20220930
  Transmission Date: 20221027
  Serious: Yes (Hospitalization, Other)
  Sender: FDA-Public Use
  Company Number: FR-AMGEN-FRASP2022167289

PATIENT
  Age: 77 Year
  Sex: Female

DRUGS (14)
  1. MVASI [Suspect]
     Active Substance: BEVACIZUMAB-AWWB
     Indication: Colon cancer
     Dosage: UNK
     Route: 065
     Dates: start: 2020, end: 202109
  2. MVASI [Suspect]
     Active Substance: BEVACIZUMAB-AWWB
     Indication: Metastases to peritoneum
     Dosage: UNK
     Route: 065
     Dates: start: 20220824
  3. MVASI [Suspect]
     Active Substance: BEVACIZUMAB-AWWB
     Dosage: UNK
     Route: 065
     Dates: start: 20220914
  4. AMITRIPTYLINE HYDROCHLORIDE [Concomitant]
     Active Substance: AMITRIPTYLINE HYDROCHLORIDE
     Dosage: 2 DROPS, IN THE MORNING, AT NOON AND EVENING PLUS 20 DROPS BEFORE BEDTIME
  5. GABAPENTIN [Concomitant]
     Active Substance: GABAPENTIN
     Dosage: 400 MG IN THE MORNING, AT NOON AND IN THE EVENING
  6. LIMODIUM [Concomitant]
     Dosage: UNK UNK, TID
  7. VOGALENE [Concomitant]
     Active Substance: METOPIMAZINE
     Dosage: UNK UNK, TID
  8. PRIMPERAN [Concomitant]
     Active Substance: METOCLOPRAMIDE HYDROCHLORIDE
     Dosage: UNK UNK, TID
  9. PREDNISOLONE [Concomitant]
     Active Substance: PREDNISOLONE
     Dosage: 1 TABLET IN THE MORNING
  10. PERINDOPRIL [Concomitant]
     Active Substance: PERINDOPRIL
     Dosage: 5 MG, ONE HALF TABLET IN THE MORNING
  11. PANTOPRAZOLE [Concomitant]
     Active Substance: PANTOPRAZOLE
     Dosage: 1 AT NOON
  12. DAFALGAN [Concomitant]
     Active Substance: ACETAMINOPHEN
     Dosage: 500MG, 2 TABLETS EVERY 6 HOURS
  13. FLUOROURACIL\IRINOTECAN\LEUCOVORIN [Concomitant]
     Active Substance: FLUOROURACIL\IRINOTECAN\LEUCOVORIN
     Dosage: UNK
  14. XELODA [Concomitant]
     Active Substance: CAPECITABINE
     Dosage: UNK

REACTIONS (10)
  - Systemic inflammatory response syndrome [Unknown]
  - Pneumomediastinum [Unknown]
  - Pneumoperitoneum [Unknown]
  - Blood test abnormal [Unknown]
  - Leukocytosis [Unknown]
  - Vomiting [Unknown]
  - Diarrhoea [Unknown]
  - Hypokalaemia [Unknown]
  - Hyperglycaemia [Unknown]
  - Gastrointestinal perforation [Unknown]

NARRATIVE: CASE EVENT DATE: 20220901
